FAERS Safety Report 12386426 (Version 4)
Quarter: 2016Q2

REPORT INFORMATION
  Report Type: Report from Study
  Country: US (occurrence: US)
  Receive Date: 20160519
  Receipt Date: 20160628
  Transmission Date: 20160815
  Serious: Yes (Hospitalization)
  Sender: FDA-Public Use
  Company Number: US-UCBSA-2016007199

PATIENT
  Age: 51 Year
  Sex: Male
  Weight: 68 kg

DRUGS (27)
  1. CERTOLIZUMAB PEGOL [Suspect]
     Active Substance: CERTOLIZUMAB PEGOL
     Indication: CROHN^S DISEASE
     Dosage: 400 MG, EV 4 WEEKS, EXP DATE: SEP-2018, NDC # 50474-700-62
     Route: 058
     Dates: start: 20090413
  2. ALENDRONATE SODIUM. [Concomitant]
     Active Substance: ALENDRONATE SODIUM
     Indication: OSTEOPOROSIS
     Dosage: 35 MG, WEEKLY (QW)
     Route: 048
     Dates: start: 20150715
  3. FLOVENT HFA [Concomitant]
     Active Substance: FLUTICASONE PROPIONATE
     Indication: WHEEZING
     Dosage: 2 DF, 2X/DAY (BID); 2 PUFFS
     Dates: start: 20160322
  4. CLARITIN [Concomitant]
     Active Substance: LORATADINE
     Indication: ANTIALLERGIC THERAPY
     Dosage: 10 MG DAILY; PRN
     Route: 048
     Dates: start: 20140412
  5. WELLBUTRIN [Concomitant]
     Active Substance: BUPROPION HYDROCHLORIDE
     Indication: ANTIDEPRESSANT THERAPY
     Dosage: 75 MG, 2X/DAY (BID)
     Route: 048
     Dates: start: 20140412
  6. VITAMIN B12 [Concomitant]
     Active Substance: CYANOCOBALAMIN
     Indication: NUTRITIONAL SUPPLEMENTATION
     Dosage: 2000 ?G DAILY
     Route: 048
     Dates: start: 20140412
  7. VITAMIN D [Concomitant]
     Active Substance: CHOLECALCIFEROL
     Indication: NUTRITIONAL SUPPLEMENTATION
     Dosage: 50000 UNIT 3 X WEEK
     Route: 048
     Dates: start: 20140412
  8. LISINOPRIL. [Concomitant]
     Active Substance: LISINOPRIL
     Indication: HYPERTENSION
     Dosage: 40 MG DAILY
     Route: 048
     Dates: start: 20150715
  9. LOMOTIL [Concomitant]
     Active Substance: ATROPINE SULFATE\DIPHENOXYLATE HYDROCHLORIDE
     Indication: DIARRHOEA
     Dosage: 2.5 MG, 4X/DAY (QID)
     Route: 048
     Dates: start: 20150715
  10. VENTOLIN HFA [Concomitant]
     Active Substance: ALBUTEROL SULFATE
     Indication: PRODUCT USED FOR UNKNOWN INDICATION
     Dosage: 2 DF, 4X/DAY (QID); 2 PUFFS
     Dates: start: 20160224
  11. TAMIFLU [Concomitant]
     Active Substance: OSELTAMIVIR PHOSPHATE
     Indication: ANTIVIRAL TREATMENT
     Dosage: 75 MG, 2X/DAY (BID)
     Route: 048
     Dates: start: 20160322, end: 20160326
  12. HYDROMORPHONE HCL [Concomitant]
     Active Substance: HYDROMORPHONE HYDROCHLORIDE
     Indication: NEPHROLITHIASIS
     Dosage: 2 MG, AS NEEDED (PRN)
     Route: 048
     Dates: start: 20140412
  13. CARVEDILOL. [Concomitant]
     Active Substance: CARVEDILOL
     Indication: HYPERTENSION
     Dosage: 25 MG, 2X/DAY (BID)
     Route: 048
     Dates: start: 20150422
  14. CYTRA-2 [Concomitant]
     Active Substance: CITRIC ACID MONOHYDRATE\TRISODIUM CITRATE DIHYDRATE
     Indication: NEPHROLITHIASIS
     Dosage: 15 ML, 2X/DAY (BID)
     Route: 048
     Dates: start: 20150422
  15. GRALISE [Concomitant]
     Active Substance: GABAPENTIN
     Indication: NERVOUS SYSTEM DISORDER
  16. NITROGLYCERIN. [Concomitant]
     Active Substance: NITROGLYCERIN
     Indication: ANGINA PECTORIS
     Dosage: 0.4 MG, AS NEEDED (PRN)
     Route: 060
     Dates: start: 20140412
  17. ASPIRIN. [Concomitant]
     Active Substance: ASPIRIN
     Indication: PLATELET AGGREGATION
     Dosage: 81 MG DAILY
     Route: 048
     Dates: start: 20140412
  18. HYDROMORPHONE HCL [Concomitant]
     Active Substance: HYDROMORPHONE HYDROCHLORIDE
     Indication: ABDOMINAL PAIN
  19. ALPRAZOLAM. [Concomitant]
     Active Substance: ALPRAZOLAM
     Indication: SEDATIVE THERAPY
     Dosage: 1 MG, 2X/DAY (BID); PRN
     Route: 048
     Dates: start: 20140412
  20. OMEPRAZOLE. [Concomitant]
     Active Substance: OMEPRAZOLE
     Indication: ULCER
     Dosage: 40 MG, 2X/DAY (BID)
     Route: 048
     Dates: start: 20140412
  21. CYANOCOBALAMIN. [Concomitant]
     Active Substance: CYANOCOBALAMIN
     Indication: PRODUCT USED FOR UNKNOWN INDICATION
     Dosage: 1000 EVERY MONTH
     Dates: start: 20140412
  22. NIFEDIPINE. [Concomitant]
     Active Substance: NIFEDIPINE
     Indication: HYPERTENSION
     Dosage: UNK
     Dates: start: 20150812
  23. AMBIEN CR [Concomitant]
     Active Substance: ZOLPIDEM TARTRATE
     Indication: HYPNOTHERAPY
     Dosage: 12.5 MG, ONCE DAILY (QD) (PRN)
     Route: 048
     Dates: start: 20140412
  24. TRAMADOL HCL [Concomitant]
     Active Substance: TRAMADOL HYDROCHLORIDE
     Indication: ABDOMINAL PAIN
     Dosage: 50 MG, 4X/DAY (QID); PRN
     Route: 048
     Dates: start: 20140412
  25. GRALISE [Concomitant]
     Active Substance: GABAPENTIN
     Indication: ANALGESIC THERAPY
     Dosage: 1800 MG, ONCE DAILY (QD); 600 MG X 3
     Route: 048
     Dates: start: 20140412
  26. IMITREX [Concomitant]
     Active Substance: SUMATRIPTAN SUCCINATE
     Indication: HEADACHE
     Dosage: 25 MG, AS NEEDED (PRN)
     Route: 048
     Dates: start: 20150909
  27. PROPRANOLOL HCL [Concomitant]
     Active Substance: PROPRANOLOL HYDROCHLORIDE
     Indication: TREMOR
     Dosage: 80 MG DAILY
     Route: 048
     Dates: start: 20150909

REACTIONS (6)
  - Abdominal pain [Recovered/Resolved]
  - Gastrointestinal disorder [Unknown]
  - Influenza [Recovered/Resolved]
  - Scar [Recovered/Resolved]
  - Crohn^s disease [Recovered/Resolved]
  - Pain [Not Recovered/Not Resolved]

NARRATIVE: CASE EVENT DATE: 201409
